FAERS Safety Report 6524873-1 (Version None)
Quarter: 2010Q1

REPORT INFORMATION
  Report Type: 
  Country: None (occurrence: None)
  Receive Date: 20100104
  Receipt Date: 20091223
  Transmission Date: 20100710
  Serious: Yes (Other)
  Sender: FDA-Public Use
  Company Number: PHHY2009DE58530

PATIENT
  Sex: Male

DRUGS (2)
  1. ZOMETA [Suspect]
     Dosage: 4 MG EVERY THREE MONTHS
     Route: 042
     Dates: start: 20060101
  2. ZOMETA [Suspect]
     Dosage: 4 MG, QMO
     Route: 042
     Dates: start: 20070101

REACTIONS (3)
  - BONE LESION [None]
  - DENTAL IMPLANTATION [None]
  - OSTEONECROSIS [None]
